FAERS Safety Report 6732557-X (Version None)
Quarter: 2010Q2

REPORT INFORMATION
  Report Type: 
  Country: None (occurrence: None)
  Receive Date: 20100519
  Receipt Date: 20100518
  Transmission Date: 20101027
  Serious: Yes (Hospitalization)
  Sender: FDA-Public Use
  Company Number: IT-BRISTOL-MYERS SQUIBB COMPANY-15061393

PATIENT
  Age: 78 Year
  Sex: Male

DRUGS (5)
  1. COUMADIN [Suspect]
     Dosage: INTERRUPTED ON 25AUG09
     Route: 048
     Dates: start: 20080913
  2. SINVACOR [Concomitant]
     Dosage: TABS
     Route: 048
     Dates: start: 20080917, end: 20090825
  3. SOTALOL HCL [Concomitant]
     Dosage: TABS
     Route: 048
     Dates: start: 20080917, end: 20090825
  4. ZYLORIC [Concomitant]
     Route: 048
     Dates: start: 20080917, end: 20090825
  5. TRIATEC HCT [Concomitant]
     Dosage: 1 DF= 5MG+ 25MG TABS
     Route: 048
     Dates: start: 20080917, end: 20090825

REACTIONS (2)
  - FALL [None]
  - MUSCLE HAEMORRHAGE [None]
